FAERS Safety Report 7332121-8 (Version None)
Quarter: 2011Q1

REPORT INFORMATION
  Report Type: 
  Country: None (occurrence: None)
  Receive Date: 20110304
  Receipt Date: 20110218
  Transmission Date: 20110831
  Serious: Yes (Other)
  Sender: FDA-Public Use
  Company Number: PHHY2011US14771

PATIENT
  Age: 85 Year
  Sex: Female

DRUGS (2)
  1. PRESERVISION /USA/ [Suspect]
     Dosage: UNK UKN, UNK
  2. GENTEAL MILD LUBRICANT EYE DROPS [Suspect]
     Dosage: UNK UKN, UNK

REACTIONS (4)
  - BLINDNESS TRANSIENT [None]
  - VISUAL IMPAIRMENT [None]
  - FOREIGN BODY SENSATION IN EYES [None]
  - EYE PRURITUS [None]
